FAERS Safety Report 17334641 (Version 1)
Quarter: 2020Q1

REPORT INFORMATION
  Report Type: Spontaneous
  Country: GB (occurrence: GB)
  Receive Date: 20200128
  Receipt Date: 20200128
  Transmission Date: 20200409
  Serious: Yes (Other)
  Sender: FDA-Public Use
  Company Number: GB-JNJFOC-20200132759

PATIENT
  Age: 25 Year
  Sex: Male

DRUGS (3)
  1. AZATHIOPRINE. [Concomitant]
     Active Substance: AZATHIOPRINE
  2. REMICADE [Suspect]
     Active Substance: INFLIXIMAB
     Indication: COLITIS ULCERATIVE
     Route: 042
  3. 5-AMINOSALICYLIC ACID [Concomitant]
     Active Substance: MESALAMINE

REACTIONS (2)
  - Cholangitis sclerosing [Recovered/Resolved]
  - Cholangiocarcinoma [Unknown]
